FAERS Safety Report 5975222-9 (Version None)
Quarter: 2008Q4

REPORT INFORMATION
  Report Type: 
  Country: None (occurrence: None)
  Receive Date: 20081202
  Receipt Date: 20080626
  Transmission Date: 20090506
  Serious: No
  Sender: FDA-Public Use
  Company Number: US-BAYER-200812649BCC

PATIENT
  Age: 13 Year
  Sex: Female
  Weight: 43 kg

DRUGS (3)
  1. MIDOL [Suspect]
     Indication: MENSTRUAL DISORDER
     Route: 048
  2. ALBUTEROL [Concomitant]
  3. CENTRUM [Concomitant]

REACTIONS (1)
  - ABNORMAL BEHAVIOUR [None]
